FAERS Safety Report 7101395-0 (Version None)
Quarter: 2010Q4

REPORT INFORMATION
  Report Type: 
  Country: None (occurrence: None)
  Receive Date: 20101108
  Receipt Date: 20101025
  Transmission Date: 20110411
  Serious: Yes (Hospitalization)
  Sender: FDA-Public Use
  Company Number: CTI_01247_2010

PATIENT
  Sex: Male

DRUGS (3)
  1. MEIACT (MEIACT MS - CEFDITOREN PIVOXIL) (NOT SPECIFIED) [Suspect]
     Indication: COUGH
     Dosage: 0.9 G QD ORAL
     Route: 048
     Dates: start: 20101007, end: 20101008
  2. MEIACT (MEIACT MS - CEFDITOREN PIVOXIL) (NOT SPECIFIED) [Suspect]
     Indication: PYREXIA
     Dosage: 0.9 G QD ORAL
     Route: 048
     Dates: start: 20101007, end: 20101008
  3. MEIACT (MEIACT MS - CEFDITOREN PIVOXIL) (NOT SPECIFIED) [Suspect]
     Indication: UPPER RESPIRATORY TRACT INFLAMMATION
     Dosage: 0.9 G QD ORAL
     Route: 048
     Dates: start: 20101007, end: 20101008

REACTIONS (4)
  - ERYTHEMA [None]
  - LYMPHADENOPATHY [None]
  - RASH MORBILLIFORM [None]
  - RESPIRATORY SYNCYTIAL VIRUS TEST POSITIVE [None]
